FAERS Safety Report 8508301 (Version 2)
Quarter: 2014Q1

REPORT INFORMATION
  Report Type: Spontaneous
  Country: US (occurrence: US)
  Receive Date: 20120412
  Receipt Date: 20140313
  Transmission Date: 20141002
  Serious: No
  Sender: FDA-Public Use
  Company Number: US-ASTRAZENECA-2011SE40567

PATIENT
  Age: 36 Year
  Sex: Female
  Weight: 52.2 kg

DRUGS (9)
  1. NEXIUM [Suspect]
     Indication: GASTROOESOPHAGEAL REFLUX DISEASE
     Route: 048
     Dates: start: 2012, end: 201312
  2. NEXIUM [Suspect]
     Indication: GASTROOESOPHAGEAL REFLUX DISEASE
     Route: 048
  3. PRILOSEC [Suspect]
     Indication: GASTROOESOPHAGEAL REFLUX DISEASE
     Route: 048
  4. PRILOSEC [Suspect]
     Indication: GASTROOESOPHAGEAL REFLUX DISEASE
     Route: 048
     Dates: start: 2013, end: 201401
  5. PROTONIX [Concomitant]
     Indication: GASTROOESOPHAGEAL REFLUX DISEASE
     Route: 048
     Dates: start: 201401
  6. LORTAB [Concomitant]
     Indication: PAIN
     Route: 048
     Dates: start: 1995
  7. XANAX [Concomitant]
     Indication: DEPRESSION
     Route: 048
     Dates: start: 1995
  8. ROBAXIN [Concomitant]
     Indication: MUSCLE SPASMS
     Route: 048
     Dates: start: 201402
  9. MAXOL [Concomitant]
     Indication: MIGRAINE
     Route: 048
     Dates: start: 1995

REACTIONS (9)
  - Crohn^s disease [Unknown]
  - Weight decreased [Unknown]
  - Unevaluable event [Unknown]
  - Abdominal distension [Unknown]
  - Hypophagia [Unknown]
  - Migraine [Unknown]
  - Malaise [Unknown]
  - Drug ineffective [Unknown]
  - Drug dose omission [Unknown]
